FAERS Safety Report 24254967 (Version 1)
Quarter: 2024Q3

REPORT INFORMATION
  Report Type: Spontaneous
  Country: US (occurrence: US)
  Receive Date: 20240827
  Receipt Date: 20240827
  Transmission Date: 20241017
  Serious: No
  Sender: PFIZER
  Company Number: US-PFIZER INC-202400242745

PATIENT
  Age: 53 Year
  Sex: Male
  Weight: 127.01 kg

DRUGS (1)
  1. NURTEC ODT [Suspect]
     Active Substance: RIMEGEPANT SULFATE
     Indication: Migraine
     Dosage: 75 MG, EVERY OTHER DAY
     Route: 048
     Dates: start: 2024, end: 2024

REACTIONS (1)
  - Drug ineffective [Unknown]
